FAERS Safety Report 9357288 (Version 4)
Quarter: 2016Q1

REPORT INFORMATION
  Report Type: Spontaneous
  Country: US (occurrence: US)
  Receive Date: 20130620
  Receipt Date: 20160202
  Transmission Date: 20160526
  Serious: Yes (Hospitalization)
  Sender: FDA-Public Use
  Company Number: US-BAYER-2013-073349

PATIENT
  Age: 39 Year
  Sex: Female
  Weight: 72.56 kg

DRUGS (3)
  1. LIPITOR [Concomitant]
     Active Substance: ATORVASTATIN CALCIUM
  2. MIRENA [Suspect]
     Active Substance: LEVONORGESTREL
     Indication: MENORRHAGIA
  3. MIRENA [Suspect]
     Active Substance: LEVONORGESTREL
     Indication: CONTRACEPTION
     Dosage: 20 MCG/24HR, CONT
     Route: 015
     Dates: start: 20120924, end: 20130206

REACTIONS (5)
  - Discomfort [Not Recovered/Not Resolved]
  - Injury [Not Recovered/Not Resolved]
  - Medical device pain [None]
  - Pain [Not Recovered/Not Resolved]
  - Uterine perforation [Not Recovered/Not Resolved]

NARRATIVE: CASE EVENT DATE: 20130206
